FAERS Safety Report 5639744-2 (Version None)
Quarter: 2008Q1

REPORT INFORMATION
  Report Type: 
  Country: None (occurrence: None)
  Receive Date: 20080222
  Receipt Date: 20080211
  Transmission Date: 20080703
  Serious: Yes (Other)
  Sender: FDA-Public Use
  Company Number: FEI2008-0233

PATIENT
  Age: 42 Year
  Sex: Female

DRUGS (1)
  1. PARAGARD T380A (INTRAUTERINE CONTRACEPTIVES) (UTERINE) [Suspect]
     Indication: CONTRACEPTION
     Dosage: INTRA-UTERINE
     Route: 015
     Dates: start: 20080205

REACTIONS (2)
  - CONVULSION [None]
  - ROAD TRAFFIC ACCIDENT [None]
